FAERS Safety Report 6713533-X (Version None)
Quarter: 2010Q2

REPORT INFORMATION
  Report Type: 
  Country: None (occurrence: None)
  Receive Date: 20100506
  Receipt Date: 20100427
  Transmission Date: 20101027
  Serious: Yes (Disabling, Other)
  Sender: FDA-Public Use
  Company Number: US-MILLENNIUM PHARMACEUTICALS, INC.-2010-01937

PATIENT
  Sex: Male
  Weight: 77.098 kg

DRUGS (15)
  1. VELCADE [Suspect]
     Indication: AMYLOIDOSIS
     Dosage: 2.4 MG, CYCLIC
     Route: 042
     Dates: start: 20100104, end: 20100225
  2. DEXAMETHASONE [Suspect]
     Indication: AMYLOIDOSIS
     Dosage: UNK
     Route: 048
     Dates: start: 20100104, end: 20100226
  3. ANDRODERM [Concomitant]
     Indication: DRUG USE FOR UNKNOWN INDICATION
     Dosage: 5 MG, UNK
     Route: 062
  4. BROMOCRIPTIN [Concomitant]
     Indication: DRUG USE FOR UNKNOWN INDICATION
     Dosage: 2.5 MG, UNK
  5. COQ10 [Concomitant]
     Indication: DRUG USE FOR UNKNOWN INDICATION
     Dosage: 100 MG, UNK
  6. COZAAR [Concomitant]
     Indication: DRUG USE FOR UNKNOWN INDICATION
     Dosage: 50 MG, BID
  7. FUROSEMIDE [Concomitant]
     Indication: DRUG USE FOR UNKNOWN INDICATION
     Dosage: UNK
  8. LEVOXYL [Concomitant]
     Indication: DRUG USE FOR UNKNOWN INDICATION
     Dosage: 50 UG, UNK
  9. LOVAZA [Concomitant]
     Indication: DRUG USE FOR UNKNOWN INDICATION
     Dosage: 2 G, BID
  10. METOPROLOL [Concomitant]
     Indication: DRUG USE FOR UNKNOWN INDICATION
     Dosage: 50 MG, UNK
  11. TRIAMTERENE [Concomitant]
     Indication: DRUG USE FOR UNKNOWN INDICATION
     Dosage: UNK
  12. HYDROCHLOROTHIAZIDE [Concomitant]
     Indication: DRUG USE FOR UNKNOWN INDICATION
     Dosage: 25 MG, UNK
  13. VYTORIN [Concomitant]
     Indication: DRUG USE FOR UNKNOWN INDICATION
     Dosage: UNK
  14. MULTI-VITAMINS [Concomitant]
     Indication: DRUG USE FOR UNKNOWN INDICATION
  15. WHEY POWDER [Concomitant]
     Indication: DRUG USE FOR UNKNOWN INDICATION

REACTIONS (4)
  - ARTHRALGIA [None]
  - FLUID RETENTION [None]
  - PAIN IN EXTREMITY [None]
  - WEIGHT INCREASED [None]
